FAERS Safety Report 11189401 (Version 1)
Quarter: 2015Q2

REPORT INFORMATION
  Report Type: Spontaneous
  Country: US (occurrence: None)
  Receive Date: 20150612
  Receipt Date: 20150612
  Transmission Date: 20150821
  Serious: Yes (Hospitalization, Other)
  Sender: FDA-Public Use
  Company Number: None

PATIENT
  Age: 77 Year
  Sex: Female
  Weight: 81.6 kg

DRUGS (16)
  1. INSULIN GLULISINE [Concomitant]
     Active Substance: INSULIN GLULISINE
  2. ISTALOL [Concomitant]
     Active Substance: TIMOLOL MALEATE
  3. ALPRAZOLAM. [Concomitant]
     Active Substance: ALPRAZOLAM
  4. METFORMIN [Concomitant]
     Active Substance: METFORMIN HYDROCHLORIDE
  5. TIMOLOL [Concomitant]
     Active Substance: TIMOLOL
  6. TOLTERODINE [Concomitant]
     Active Substance: TOLTERODINE
  7. CITALOPRAM [Concomitant]
     Active Substance: CITALOPRAM HYDROBROMIDE
  8. GLIPIZIDE. [Concomitant]
     Active Substance: GLIPIZIDE
  9. OLMESARTAN [Concomitant]
     Active Substance: OLMESARTAN
  10. METFORMIN [Suspect]
     Active Substance: METFORMIN HYDROCHLORIDE
     Indication: DIABETES MELLITUS
     Route: 048
  11. HCTZ [Concomitant]
     Active Substance: HYDROCHLOROTHIAZIDE
  12. OXYBUTYNIN [Concomitant]
     Active Substance: OXYBUTYNIN
  13. ZIPRASIDONE [Concomitant]
     Active Substance: ZIPRASIDONE
  14. OMEPRAZOLE. [Concomitant]
     Active Substance: OMEPRAZOLE
  15. XYZAL [Concomitant]
     Active Substance: LEVOCETIRIZINE DIHYDROCHLORIDE
  16. TRAVOPROST [Concomitant]
     Active Substance: TRAVOPROST

REACTIONS (6)
  - Pyelonephritis [None]
  - Proteus test positive [None]
  - Urinary tract infection [None]
  - Hyperglycaemia [None]
  - Acute kidney injury [None]
  - Bacteraemia [None]

NARRATIVE: CASE EVENT DATE: 20150608
